FAERS Safety Report 9299351 (Version 2)
Quarter: 2013Q4

REPORT INFORMATION
  Report Type: Spontaneous
  Country: US (occurrence: US)
  Receive Date: 20130520
  Receipt Date: 20131105
  Transmission Date: 20140711
  Serious: Yes (Hospitalization)
  Sender: FDA-Public Use
  Company Number: US-B.I. PHARMACEUTICALS,INC./RIDGEFIELD-2013-BI-13710BP

PATIENT
  Age: 80 Year
  Sex: Female
  Weight: 72.57 kg

DRUGS (11)
  1. PRADAXA [Suspect]
     Indication: ANTICOAGULANT THERAPY
     Dates: start: 20110308
  2. PRADAXA [Suspect]
     Indication: ATRIAL FIBRILLATION
  3. PACERONE [Concomitant]
     Dosage: 200 MG
     Route: 048
  4. LIPITOR [Concomitant]
     Dosage: 10 MG
     Route: 048
  5. COREG CR [Concomitant]
     Dosage: 80 MG
     Route: 048
  6. FERROUS SULFATE [Concomitant]
     Dosage: 325 MG
     Route: 048
  7. LASIX [Concomitant]
     Dosage: 40 MG
     Route: 048
  8. ZAROXOLYN [Concomitant]
     Dosage: 2.5 MG
     Route: 048
  9. PRILOSEC [Concomitant]
     Dosage: 20 MG
     Route: 048
  10. ALDACTONE [Concomitant]
     Dosage: 25 MG
     Route: 048
  11. DIOVAN [Concomitant]
     Dosage: 40 MG
     Route: 048

REACTIONS (8)
  - Gastrointestinal haemorrhage [Unknown]
  - Ischaemic stroke [Unknown]
  - Haemorrhagic anaemia [Unknown]
  - Haemorrhagic stroke [Unknown]
  - Cerebral haemorrhage [Unknown]
  - Respiratory failure [Unknown]
  - Blood urine present [Unknown]
  - Epistaxis [Unknown]
